FAERS Safety Report 6880541-8 (Version None)
Quarter: 2010Q3

REPORT INFORMATION
  Report Type: 
  Country: None (occurrence: None)
  Receive Date: 20100728
  Receipt Date: 20100715
  Transmission Date: 20110219
  Serious: Yes (Death, Other)
  Sender: FDA-Public Use
  Company Number: HU-GENZYME-CLOF-1000980

PATIENT

DRUGS (3)
  1. EVOLTRA [Suspect]
     Indication: ACUTE MYELOID LEUKAEMIA RECURRENT
     Dosage: 40 MG/DAY, ONCE
     Route: 042
     Dates: start: 20100428, end: 20100501
  2. ARA-C [Suspect]
     Indication: ACUTE MYELOID LEUKAEMIA RECURRENT
     Dosage: 1 G/DAY, UNK
     Dates: start: 20100428, end: 20100429
  3. ARA-C [Suspect]
     Dosage: 500 MG, UNK
     Dates: start: 20100430, end: 20100501

REACTIONS (3)
  - ACUTE MYELOID LEUKAEMIA [None]
  - FLUID OVERLOAD [None]
  - SEPTIC SHOCK [None]
